FAERS Safety Report 7901779-4 (Version None)
Quarter: 2011Q4

REPORT INFORMATION
  Report Type: 
  Country: None (occurrence: None)
  Receive Date: 20111108
  Receipt Date: 20111026
  Transmission Date: 20120403
  Serious: Yes (Hospitalization, Other)
  Sender: FDA-Public Use
  Company Number: PHHY2011BR86831

PATIENT
  Sex: Female

DRUGS (3)
  1. CHLOROQUINE DIPHOSPHATE [Concomitant]
     Indication: ARTHRALGIA
     Dosage: 400 MG, QD
     Route: 048
  2. FORMOTEROL FUMARATE [Suspect]
     Indication: EMPHYSEMA
     Dosage: 1 DF, BID (12 MCG FORM AND 400 MCG BUDE)
  3. EXFORGE [Suspect]
     Indication: HYPERTENSION
     Dosage: 1 DF, DAILY (320 MG VALS AND 5 MG AMLO)

REACTIONS (5)
  - DYSPNOEA [None]
  - MEMORY IMPAIRMENT [None]
  - ARTHRALGIA [None]
  - MUSCULOSKELETAL PAIN [None]
  - BLOOD PRESSURE INCREASED [None]
